FAERS Safety Report 13948767 (Version 2)
Quarter: 2018Q1

REPORT INFORMATION
  Report Type: Spontaneous
  Country: RU (occurrence: RU)
  Receive Date: 20170908
  Receipt Date: 20180126
  Transmission Date: 20180508
  Serious: Yes (Hospitalization)
  Sender: FDA-Public Use
  Company Number: RU-ASTRAZENECA-2017SE90993

PATIENT
  Age: 63 Year
  Sex: Female
  Weight: 93 kg

DRUGS (8)
  1. ASPIRIN. [Concomitant]
     Active Substance: ASPIRIN
  2. ATORVASTATIN [Concomitant]
     Active Substance: ATORVASTATIN
  3. KETOROL [Concomitant]
     Active Substance: KETOROLAC TROMETHAMINE
  4. BRILINTA [Suspect]
     Active Substance: TICAGRELOR
     Indication: MYOCARDIAL INFARCTION
     Route: 048
     Dates: start: 201704
  5. METFORMIN [Concomitant]
     Active Substance: METFORMIN HYDROCHLORIDE
  6. OMEPRAZOL [Concomitant]
     Active Substance: OMEPRAZOLE
  7. LOSARTAN. [Concomitant]
     Active Substance: LOSARTAN
  8. MEXIDOL [Concomitant]

REACTIONS (6)
  - Synovial cyst [Not Recovered/Not Resolved]
  - Pruritus [Not Recovered/Not Resolved]
  - Dyspnoea [Not Recovered/Not Resolved]
  - Myocardial infarction [Recovered/Resolved]
  - Chest pain [Not Recovered/Not Resolved]
  - Skin discolouration [Recovered/Resolved]

NARRATIVE: CASE EVENT DATE: 201704
